FAERS Safety Report 14337936 (Version 2)
Quarter: 2018Q1

REPORT INFORMATION
  Report Type: Report from Study
  Country: AT (occurrence: AT)
  Receive Date: 20171229
  Receipt Date: 20180209
  Transmission Date: 20180509
  Serious: Yes (Death, Other)
  Sender: FDA-Public Use
  Company Number: AT-INCYTE CORPORATION-2017IN011206

PATIENT

DRUGS (12)
  1. JAKAVI [Suspect]
     Active Substance: RUXOLITINIB
     Dosage: 5 MG, BID
     Route: 048
     Dates: start: 20170208, end: 20170209
  2. JAKAVI [Suspect]
     Active Substance: RUXOLITINIB
     Dosage: 5 MG, BID
     Route: 048
     Dates: start: 20170210, end: 20170213
  3. JAKAVI [Suspect]
     Active Substance: RUXOLITINIB
     Dosage: 10 MG, BID
     Route: 048
     Dates: start: 20170223, end: 20170223
  4. JAKAVI [Suspect]
     Active Substance: RUXOLITINIB
     Indication: MYELOFIBROSIS
     Dosage: 25 MG, QD (15 MG-0-10MG)
     Route: 048
     Dates: end: 20140129
  5. FAMCICLOVIR. [Concomitant]
     Active Substance: FAMCICLOVIR
     Indication: HERPES ZOSTER
     Route: 065
  6. ACELISINO COMP [Concomitant]
     Indication: HYPERTENSION
     Route: 065
  7. JAKAVI [Suspect]
     Active Substance: RUXOLITINIB
     Dosage: 20 MG, BID
     Route: 048
     Dates: start: 20140630, end: 20161207
  8. EXJADE [Concomitant]
     Active Substance: DEFERASIROX
     Indication: IRON OVERLOAD
     Route: 065
  9. FAMCICLOVIR. [Concomitant]
     Active Substance: FAMCICLOVIR
     Route: 065
  10. JAKAVI [Suspect]
     Active Substance: RUXOLITINIB
     Dosage: 10 MG, BID
     Route: 048
  11. JAKAVI [Suspect]
     Active Substance: RUXOLITINIB
     Dosage: 5 MG, QD
     Route: 048
     Dates: start: 20170214, end: 20170219
  12. JAKAVI [Suspect]
     Active Substance: RUXOLITINIB
     Dosage: 10 MG, BID
     Route: 048
     Dates: start: 20170220, end: 20170222

REACTIONS (10)
  - Ascites [Not Recovered/Not Resolved]
  - Haematocrit decreased [Unknown]
  - Diarrhoea [Recovered/Resolved]
  - Blood lactate dehydrogenase increased [Unknown]
  - Neutropenia [Recovered/Resolved]
  - Basophil count increased [Unknown]
  - Graft versus host disease in gastrointestinal tract [Fatal]
  - Haemoglobin decreased [Unknown]
  - Splenomegaly [Not Recovered/Not Resolved]
  - Decreased appetite [Not Recovered/Not Resolved]

NARRATIVE: CASE EVENT DATE: 20111114
